FAERS Safety Report 13685542 (Version 1)
Quarter: 2017Q2

REPORT INFORMATION
  Report Type: Spontaneous
  Country: US (occurrence: US)
  Receive Date: 20170623
  Receipt Date: 20170623
  Transmission Date: 20170830
  Serious: No
  Sender: FDA-Public Use
  Company Number: US-BAYER-2017-104293

PATIENT
  Age: 52 Year
  Sex: Female

DRUGS (13)
  1. STIVARGA [Suspect]
     Active Substance: REGORAFENIB
     Indication: GASTROINTESTINAL STROMAL CANCER
     Dosage: UNKNOWN
  2. GARLIC. [Concomitant]
     Active Substance: GARLIC
  3. STIVARGA [Suspect]
     Active Substance: REGORAFENIB
     Indication: GASTROINTESTINAL STROMAL CANCER
     Dosage: UNKNOWN
  4. CALCIUM CITRATE [Concomitant]
     Active Substance: CALCIUM CITRATE
  5. CRANBERRY. [Concomitant]
     Active Substance: CRANBERRY
  6. IRON [Concomitant]
     Active Substance: IRON
  7. LEVOTHYROXINE SODIUM. [Concomitant]
     Active Substance: LEVOTHYROXINE SODIUM
  8. CENTRUM [MINERALS NOS,VITAMINS NOS] [Concomitant]
  9. COCONUT OIL [Concomitant]
     Active Substance: COCONUT OIL
  10. VITAMIN D3 [Concomitant]
     Active Substance: CHOLECALCIFEROL
  11. OMEGA 3 [Concomitant]
     Active Substance: OMEGA-3 FATTY ACIDS
  12. TURMERIC [Concomitant]
     Active Substance: HERBALS\TURMERIC
  13. SELENIUM [Concomitant]
     Active Substance: SELENIUM

REACTIONS (8)
  - Nausea [None]
  - Headache [None]
  - Arthralgia [None]
  - Oral mucosal blistering [None]
  - Pyrexia [None]
  - Malaise [None]
  - Decreased appetite [None]
  - Chills [None]
